FAERS Safety Report 17329980 (Version 2)
Quarter: 2020Q2

REPORT INFORMATION
  Report Type: Spontaneous
  Country: BR (occurrence: BR)
  Receive Date: 20200128
  Receipt Date: 20200511
  Transmission Date: 20200713
  Serious: Yes (Other)
  Sender: FDA-Public Use
  Company Number: BR-SA-2020SA018360

PATIENT
  Age: 22 Year
  Sex: Female
  Weight: 77 kg

DRUGS (1)
  1. RANITIDINE HYDROCHLORIDE. [Suspect]
     Active Substance: RANITIDINE HYDROCHLORIDE
     Indication: DYSPEPSIA
     Dosage: FROM 2 TO THREE TABLETS A DAY ONE IN THE MORNING AND ONE AFTER LUNCH AND ONE AT NIGHT
     Route: 048
     Dates: start: 20200120

REACTIONS (5)
  - Amniotic fluid volume decreased [Recovered/Resolved]
  - Vaginal discharge [Not Recovered/Not Resolved]
  - Ovarian hyperstimulation syndrome [Recovered/Resolved]
  - Exposure during pregnancy [Unknown]
  - Condition aggravated [Not Recovered/Not Resolved]

NARRATIVE: CASE EVENT DATE: 2020
